FAERS Safety Report 5711020-9 (Version None)
Quarter: 2008Q2

REPORT INFORMATION
  Report Type: 
  Country: None (occurrence: None)
  Receive Date: 20080421
  Receipt Date: 20080416
  Transmission Date: 20081010
  Serious: Yes (Hospitalization)
  Sender: FDA-Public Use
  Company Number: US-ASTRAZENECA-2008UW05459

PATIENT
  Age: 67 Year
  Sex: Male
  Weight: 88 kg

DRUGS (6)
  1. ATACAND HCT [Suspect]
     Dosage: 32/12.5 MG QD
     Route: 048
     Dates: start: 20050101
  2. ACIPHEX [Concomitant]
  3. AMBIEN [Concomitant]
  4. COREG [Concomitant]
  5. PLAVIX [Concomitant]
  6. LIPITOR [Concomitant]

REACTIONS (4)
  - ALOPECIA [None]
  - ARTHRALGIA [None]
  - JOINT SWELLING [None]
  - RHABDOMYOLYSIS [None]
